FAERS Safety Report 7365885-8 (Version None)
Quarter: 2011Q1

REPORT INFORMATION
  Report Type: 
  Country: None (occurrence: None)
  Receive Date: 20110322
  Receipt Date: 20110314
  Transmission Date: 20110831
  Serious: Yes (Other)
  Sender: FDA-Public Use
  Company Number: JP-ASTELLAS-2011JP001861

PATIENT
  Age: 12 Year
  Sex: Male

DRUGS (8)
  1. ETOPOSIDE [Concomitant]
     Route: 065
  2. METHYLPREDNISOLONE [Concomitant]
     Indication: GRAFT VERSUS HOST DISEASE
     Dosage: 1 MG/KG, UNKNOWN/D
     Route: 065
  3. METHYLPREDNISOLONE [Concomitant]
     Dosage: 0.8 MG/KG, UNKNOWN/D
     Route: 065
  4. METHYLPREDNISOLONE [Concomitant]
     Route: 065
  5. METHYLPREDNISOLONE [Concomitant]
     Route: 065
  6. PROGRAF [Suspect]
     Indication: PROPHYLAXIS AGAINST GRAFT VERSUS HOST DISEASE
     Route: 065
  7. L-PAM [Concomitant]
     Route: 065
  8. METHOTREXATE [Concomitant]
     Indication: PROPHYLAXIS AGAINST GRAFT VERSUS HOST DISEASE
     Route: 065

REACTIONS (3)
  - GRAFT VERSUS HOST DISEASE [None]
  - GASTROENTERITIS EOSINOPHILIC [None]
  - DRUG INEFFECTIVE [None]
